FAERS Safety Report 4320713-X (Version None)
Quarter: 2004Q1

REPORT INFORMATION
  Report Type: 
  Country: None (occurrence: None)
  Receive Date: 20040318
  Receipt Date: 20040301
  Transmission Date: 20041129
  Serious: Yes (Life-Threatening)
  Sender: FDA-Public Use
  Company Number: A06200400061

PATIENT
  Age: 87 Year
  Sex: Female

DRUGS (2)
  1. STILNOX-(ZOLIPIDEM)-TABLET-10 MG [Suspect]
     Indication: SLEEP DISORDER
     Dosage: 10 MG OD ORAL
     Route: 048
     Dates: start: 19980101, end: 20040106
  2. RISPERDAL [Concomitant]

REACTIONS (1)
  - COMA [None]
